FAERS Safety Report 8252738-6 (Version None)
Quarter: 2012Q2

REPORT INFORMATION
  Report Type: 
  Country: None (occurrence: None)
  Receive Date: 20120402
  Receipt Date: 20111206
  Transmission Date: 20120825
  Serious: Yes (Other)
  Sender: FDA-Public Use
  Company Number: US-ABBOTT-11P-163-0881096-00

PATIENT
  Age: 60 Year
  Sex: Male

DRUGS (8)
  1. ADDERALL 5 [Suspect]
     Indication: ATTENTION DEFICIT/HYPERACTIVITY DISORDER
  2. ANDROGEL [Suspect]
     Route: 061
     Dates: start: 20110701, end: 20110801
  3. ANDROGEL [Suspect]
     Route: 061
     Dates: start: 20110801, end: 20110901
  4. ANDROGEL [Suspect]
     Route: 061
     Dates: end: 20111101
  5. ANDROGEL [Suspect]
     Indication: BLOOD TESTOSTERONE DECREASED
     Route: 061
     Dates: end: 20110601
  6. ANDROGEL [Suspect]
     Route: 061
     Dates: start: 20110601, end: 20110701
  7. ANDROGEL [Suspect]
     Route: 061
     Dates: start: 20110901, end: 20111101
  8. JALYN [Concomitant]
     Indication: PROSTATOMEGALY
     Dates: start: 20110501

REACTIONS (3)
  - PROSTATE CANCER [None]
  - LETHARGY [None]
  - SOMNOLENCE [None]
